FAERS Safety Report 4492100-5 (Version None)
Quarter: 2004Q4

REPORT INFORMATION
  Report Type: 
  Country: None (occurrence: None)
  Receive Date: 20041101
  Receipt Date: 20041018
  Transmission Date: 20050328
  Serious: Yes (Disabling)
  Sender: FDA-Public Use
  Company Number: 2003041194

PATIENT
  Age: 50 Year
  Sex: Female

DRUGS (8)
  1. LIPITOR [Suspect]
     Indication: BLOOD CHOLESTEROL
     Dates: start: 20000601, end: 20010101
  2. SIMVASTATIN [Suspect]
     Indication: BLOOD CHOLESTEROL
     Dates: start: 19960501, end: 20000601
  3. COLESVELAM HYDROCHLORIDE (COLESVELAM HYDROCHLORIDE) [Suspect]
     Indication: BLOOD CHOLESTEROL
     Dosage: (2 IN 1 D)
     Dates: start: 20010215
  4. CALCIUM (CALCIUM) [Concomitant]
  5. IBUPROFEN [Concomitant]
  6. FERROUS SULFATE TAB [Concomitant]
  7. PROTEIN SUPPLEMENTS (PROTEIN SUPPLEMENTS) [Concomitant]
  8. ASPIRIN [Concomitant]

REACTIONS (51)
  - ABASIA [None]
  - ADVERSE DRUG REACTION [None]
  - ALANINE AMINOTRANSFERASE DECREASED [None]
  - ANISOCYTOSIS [None]
  - ARTHRALGIA [None]
  - ASTHENIA [None]
  - BACK PAIN [None]
  - BLOOD CHLORIDE INCREASED [None]
  - BLOOD CHOLESTEROL INCREASED [None]
  - BLOOD UREA DECREASED [None]
  - BONE DISORDER [None]
  - BREAST PAIN [None]
  - CHEST PAIN [None]
  - DENTAL EXAMINATION ABNORMAL [None]
  - DYSPEPSIA [None]
  - ECONOMIC PROBLEM [None]
  - ELECTROCARDIOGRAM ABNORMAL [None]
  - FATIGUE [None]
  - HAEMATOCRIT DECREASED [None]
  - HAEMOGLOBIN DECREASED [None]
  - HIGH DENSITY LIPOPROTEIN INCREASED [None]
  - HYPOCHROMASIA [None]
  - INSOMNIA [None]
  - JOINT STIFFNESS [None]
  - LOW DENSITY LIPOPROTEIN INCREASED [None]
  - MEAN CELL HAEMOGLOBIN DECREASED [None]
  - MEAN CELL VOLUME DECREASED [None]
  - MEMORY IMPAIRMENT [None]
  - MICROCYTOSIS [None]
  - MUSCLE CRAMP [None]
  - MUSCLE INJURY [None]
  - MUSCULOSKELETAL PAIN [None]
  - MUSCULOSKELETAL STIFFNESS [None]
  - MYALGIA [None]
  - MYOPATHY [None]
  - MYOSITIS [None]
  - NEPHROLITHIASIS [None]
  - OLIGOMENORRHOEA [None]
  - PAIN IN EXTREMITY [None]
  - PCO2 DECREASED [None]
  - PHOTOPHOBIA [None]
  - PHOTOSENSITIVITY REACTION [None]
  - POLLAKIURIA [None]
  - PYREXIA [None]
  - RASH [None]
  - RED BLOOD CELL TARGET CELLS PRESENT [None]
  - RED CELL DISTRIBUTION WIDTH INCREASED [None]
  - SPECIFIC GRAVITY URINE DECREASED [None]
  - SPONDYLOSIS [None]
  - TENDERNESS [None]
  - WHITE BLOOD CELLS URINE POSITIVE [None]
